FAERS Safety Report 6468300-1 (Version None)
Quarter: 2009Q4

REPORT INFORMATION
  Report Type: 
  Country: None (occurrence: None)
  Receive Date: 20091124
  Receipt Date: 20091109
  Transmission Date: 20100525
  Serious: Yes (Other)
  Sender: FDA-Public Use
  Company Number: 2009296633

PATIENT
  Sex: Female
  Weight: 1 kg

DRUGS (1)
  1. DALTEPARIN SODIUM [Suspect]
     Indication: ANTICOAGULANT THERAPY
     Dosage: 5000 IU, 2X/DAY, TRANSPLACENTAL ; 8.75 IU/KG, 2X/DAY, TRANSPLACENTAL
     Route: 064

REACTIONS (4)
  - CAESAREAN SECTION [None]
  - MATERNAL DRUGS AFFECTING FOETUS [None]
  - PREMATURE BABY [None]
  - SMALL FOR DATES BABY [None]
